FAERS Safety Report 9461783 (Version 3)
Quarter: 2013Q3

REPORT INFORMATION
  Report Type: Spontaneous
  Country: GB (occurrence: GB)
  Receive Date: 20130816
  Receipt Date: 20130924
  Transmission Date: 20140515
  Serious: Yes (Hospitalization)
  Sender: FDA-Public Use
  Company Number: GB-SUN PHARMACEUTICAL INDUSTRIES LTD-2013SUN04514

PATIENT
  Age: 63 Year
  Sex: Male

DRUGS (16)
  1. GEMCITABINE SUN 200 MG POWDER FOR SOLUTION FOR INFUSION [Suspect]
     Indication: PANCREATIC CARCINOMA
     Dosage: 1500 MG, PER CYCLE
     Route: 042
     Dates: start: 20130121
  2. GEMCITABINE SUN 200 MG POWDER FOR SOLUTION FOR INFUSION [Suspect]
     Dosage: 2170 MG, PER CYCLE
     Route: 042
     Dates: start: 20130124, end: 20130718
  3. GEMCITABINE SUN 200 MG POWDER FOR SOLUTION FOR INFUSION [Suspect]
     Dosage: UNK
     Route: 042
     Dates: start: 20130425
  4. GEMCITABINE SUN 200 MG POWDER FOR SOLUTION FOR INFUSION [Suspect]
     Dosage: 1670 MG
     Route: 042
     Dates: start: 20130628, end: 20130718
  5. GEMCITABINE SUN 200 MG POWDER FOR SOLUTION FOR INFUSION [Suspect]
     Dosage: UNK
     Route: 042
     Dates: start: 20130822
  6. IMM-101 [Suspect]
     Indication: PANCREATIC CARCINOMA
     Dosage: 1 MG, UNK
     Route: 023
     Dates: start: 20130103
  7. IMM-101 [Suspect]
     Dosage: 1 MG, UNK
     Route: 023
     Dates: start: 20130404
  8. IMM-101 [Suspect]
     Dosage: UNK
     Route: 023
     Dates: start: 20130530
  9. IMM-101 [Suspect]
     Dosage: UNK
     Route: 023
     Dates: start: 20130725
  10. CALCHICHEW [Concomitant]
     Indication: VITAMIN D DEFICIENCY
     Dosage: 2 DF, QD
     Route: 048
     Dates: start: 20130403
  11. OMEPRAZOLE [Concomitant]
     Indication: EPIGASTRIC DISCOMFORT
     Dosage: 10 MG, UNK
     Route: 048
  12. MAALOX [Concomitant]
     Indication: EPIGASTRIC DISCOMFORT
     Dosage: 5 - 10 MLS, QD,
     Route: 048
  13. FLUCONAZOLE [Concomitant]
     Indication: EPIGASTRIC DISCOMFORT
     Dosage: 50 MG, UNK
     Route: 048
  14. PRIADEL [Concomitant]
     Indication: DEPRESSION
     Dosage: 800 MG, UNK
     Route: 048
  15. MANERIX [Concomitant]
     Indication: DEPRESSION
     Dosage: 150 MG, BID
     Route: 048
     Dates: start: 20130429
  16. GLIMEPIRIDE [Concomitant]
     Indication: DIABETES MELLITUS
     Dosage: 3 MG, UNK
     Route: 048
     Dates: start: 20130412

REACTIONS (4)
  - Biliary sepsis [Recovered/Resolved]
  - Cholecystitis [Recovered/Resolved]
  - Device related infection [Recovered/Resolved]
  - Anaemia [Not Recovered/Not Resolved]
